FAERS Safety Report 5079267-5 (Version None)
Quarter: 2006Q3

REPORT INFORMATION
  Report Type: 
  Country: None (occurrence: None)
  Receive Date: 20060814
  Receipt Date: 20060810
  Transmission Date: 20061208
  Serious: Yes (Other)
  Sender: FDA-Public Use
  Company Number: US-GLAXOSMITHKLINE-A0616187A

PATIENT
  Age: 54 Year
  Sex: Female

DRUGS (4)
  1. GOODY'S EXTRA STRENGTH HEADACHE POWDER [Suspect]
     Indication: ILL-DEFINED DISORDER
     Route: 048
  2. GLUCOPHAGE [Concomitant]
     Dosage: 500MG FOUR TIMES PER DAY
  3. PAXIL [Concomitant]
  4. VITORIN [Concomitant]

REACTIONS (4)
  - CHEST PAIN [None]
  - DEPENDENCE [None]
  - DUODENAL ULCER [None]
  - HEADACHE [None]
